FAERS Safety Report 9174324 (Version 2)
Quarter: 2013Q2

REPORT INFORMATION
  Report Type: Spontaneous
  Country: US (occurrence: None)
  Receive Date: 20130314
  Receipt Date: 20130401
  Transmission Date: 20140414
  Serious: Yes (Life-Threatening, Hospitalization, Other)
  Sender: FDA-Public Use
  Company Number: 13-00960

PATIENT
  Age: 59 Year
  Sex: Female

DRUGS (1)
  1. ASTHMANEFRIN [Suspect]
     Indication: ASTHMA
     Dosage: 1 VIAL ONCE 054
     Dates: start: 20130201

REACTIONS (3)
  - Bronchospasm [None]
  - Hypoxia [None]
  - Loss of consciousness [None]
